FAERS Safety Report 18186267 (Version 1)
Quarter: 2020Q3

REPORT INFORMATION
  Report Type: Spontaneous
  Country: DE (occurrence: DE)
  Receive Date: 20200824
  Receipt Date: 20200824
  Transmission Date: 20201103
  Serious: Yes (Hospitalization)
  Sender: FDA-Public Use
  Company Number: DE-BAYER-2013-007038

PATIENT
  Age: 47 Year
  Sex: Male
  Weight: 79 kg

DRUGS (51)
  1. ULTRAVIST [Suspect]
     Active Substance: IOPROMIDE
     Indication: COMPUTERISED TOMOGRAM
     Dosage: UNK
     Route: 065
     Dates: start: 20110530
  2. DEXAMETHASONE. [Concomitant]
     Active Substance: DEXAMETHASONE
     Dosage: DAILY DOSE 4MG
     Dates: start: 20110305, end: 20110502
  3. METHYLPREDNISOLON [METHYLPREDNISOLONE] [Concomitant]
     Active Substance: METHYLPREDNISOLONE
     Dosage: 500 MG
     Dates: start: 20120119, end: 20120119
  4. LEVETIRACETAM. [Concomitant]
     Active Substance: LEVETIRACETAM
     Dosage: 2000 MG
     Route: 065
     Dates: start: 20110110, end: 20110118
  5. LEVETIRACETAM. [Concomitant]
     Active Substance: LEVETIRACETAM
     Dosage: 3000 MG
     Route: 065
     Dates: start: 20110125, end: 20110413
  6. KANAMYCIN [Concomitant]
     Active Substance: KANAMYCIN A SULFATE
     Dosage: 1?1?1?1
     Dates: start: 20110314, end: 20110418
  7. METHYLPREDNISOLON [METHYLPREDNISOLONE] [Concomitant]
     Active Substance: METHYLPREDNISOLONE
     Dosage: 20 MG
     Dates: start: 20111214, end: 20120118
  8. RAMIPRIL. [Concomitant]
     Active Substance: RAMIPRIL
     Dosage: 5 MG
     Dates: start: 20110916
  9. METHYLPREDNISOLON [METHYLPREDNISOLONE] [Concomitant]
     Active Substance: METHYLPREDNISOLONE
     Dosage: 40 MG
     Dates: start: 20110606, end: 20110614
  10. METHYLPREDNISOLON [METHYLPREDNISOLONE] [Concomitant]
     Active Substance: METHYLPREDNISOLONE
     Dosage: 20 MG
     Dates: start: 20110615, end: 20110620
  11. PROPRANOLOL [Concomitant]
     Active Substance: PROPRANOLOL HYDROCHLORIDE
     Dosage: 20 MG
     Dates: start: 20110918
  12. GLYCEROSTERIL [Concomitant]
     Dosage: 375 ML
     Dates: start: 20120123, end: 20120123
  13. DEXAMETHASONE. [Concomitant]
     Active Substance: DEXAMETHASONE
     Dosage: DAILY DOSE 2MG
     Dates: start: 20110202, end: 20110209
  14. DEXAMETHASONE. [Concomitant]
     Active Substance: DEXAMETHASONE
     Dosage: DAILY DOSE 2MG
     Dates: start: 20110223, end: 20110228
  15. DEXAMETHASONE. [Concomitant]
     Active Substance: DEXAMETHASONE
     Dosage: 6 MG
     Dates: start: 20110525, end: 20110529
  16. METHYLPREDNISOLON [METHYLPREDNISOLONE] [Concomitant]
     Active Substance: METHYLPREDNISOLONE
     Dosage: 120 MG
     Route: 065
     Dates: start: 20120127, end: 20120201
  17. METHYLPREDNISOLON [METHYLPREDNISOLONE] [Concomitant]
     Active Substance: METHYLPREDNISOLONE
     Dosage: 120 MG
     Dates: start: 20110501, end: 20110605
  18. METHYLPREDNISOLON [METHYLPREDNISOLONE] [Concomitant]
     Active Substance: METHYLPREDNISOLONE
     Dosage: 10 MG
     Dates: start: 20110712, end: 20110714
  19. LEVETIRACETAM. [Concomitant]
     Active Substance: LEVETIRACETAM
     Dosage: 4000 MG (2 IN 1 D)
     Route: 065
     Dates: start: 20110118, end: 20110126
  20. GLYCEROSTERIL [Concomitant]
     Dosage: 625 ML
     Dates: start: 20120124, end: 20120124
  21. BEVACIZUMAB. [Suspect]
     Active Substance: BEVACIZUMAB
     Indication: GLIOBLASTOMA MULTIFORME
     Dosage: 820 MG BI WEEKLY
     Route: 042
  22. TEMOZOLOMIDE. [Suspect]
     Active Substance: TEMOZOLOMIDE
     Indication: GLIOBLASTOMA MULTIFORME
     Dosage: 420 MG, D1 ? D5 EVERY 28 DAYS
     Dates: start: 20110112
  23. METHYLPREDNISOLON [METHYLPREDNISOLONE] [Concomitant]
     Active Substance: METHYLPREDNISOLONE
     Dosage: 10 MG
     Route: 065
     Dates: start: 20110712, end: 20110728
  24. METHYLPREDNISOLON [METHYLPREDNISOLONE] [Concomitant]
     Active Substance: METHYLPREDNISOLONE
     Dosage: 500 MG
     Dates: start: 20110502, end: 20110502
  25. METHYLPREDNISOLON [METHYLPREDNISOLONE] [Concomitant]
     Active Substance: METHYLPREDNISOLONE
     Dosage: 16 MG
     Dates: start: 20110621, end: 20110711
  26. METHYLPREDNISOLON [METHYLPREDNISOLONE] [Concomitant]
     Active Substance: METHYLPREDNISOLONE
     Dosage: 500 MG
     Dates: start: 20120125, end: 20120125
  27. IRINOTECAN [Suspect]
     Active Substance: IRINOTECAN
     Indication: GLIOBLASTOMA MULTIFORME
     Dosage: 253.20 MG BI WEEKLY
     Route: 042
  28. DEXAMETHASONE. [Concomitant]
     Active Substance: DEXAMETHASONE
     Dosage: DAILY DOSE 1MG
     Dates: start: 20110228, end: 20110305
  29. DEXAMETHASONE. [Concomitant]
     Active Substance: DEXAMETHASONE
     Dosage: 6 MG
     Dates: start: 20110518, end: 20110518
  30. METHYLPREDNISOLON [METHYLPREDNISOLONE] [Concomitant]
     Active Substance: METHYLPREDNISOLONE
     Dosage: 500 MG
     Route: 065
     Dates: start: 20110505, end: 20110505
  31. METHYLPREDNISOLON [METHYLPREDNISOLONE] [Concomitant]
     Active Substance: METHYLPREDNISOLONE
     Dosage: 40 MG
     Route: 065
     Dates: start: 20110508, end: 20110515
  32. METHYLPREDNISOLON [METHYLPREDNISOLONE] [Concomitant]
     Active Substance: METHYLPREDNISOLONE
     Dosage: 40 MG
     Dates: start: 20110530, end: 20110530
  33. SULFAMETHOXAZOLE;TRIMETHOPRIM [Concomitant]
     Active Substance: SULFAMETHOXAZOLE\TRIMETHOPRIM
     Dosage: 960 MG
     Dates: start: 20110112, end: 20110314
  34. GLYCEROSTERIL [Concomitant]
     Dosage: 500 ML
     Dates: start: 20120125, end: 20120126
  35. DEXAMETHASONE. [Concomitant]
     Active Substance: DEXAMETHASONE
     Dosage: DAILY DOSE 4MG
     Dates: start: 20110209, end: 20110218
  36. METHYLPREDNISOLON [METHYLPREDNISOLONE] [Concomitant]
     Active Substance: METHYLPREDNISOLONE
     Dosage: 1000 MG
     Dates: start: 20110502, end: 20110504
  37. METHYLPREDNISOLON [METHYLPREDNISOLONE] [Concomitant]
     Active Substance: METHYLPREDNISOLONE
     Dosage: 1 MG
     Route: 065
     Dates: start: 20110810, end: 20110824
  38. METHYLPREDNISOLON [METHYLPREDNISOLONE] [Concomitant]
     Active Substance: METHYLPREDNISOLONE
     Dosage: 4 MG
     Dates: start: 20110715, end: 20110727
  39. METHYLPREDNISOLON [METHYLPREDNISOLONE] [Concomitant]
     Active Substance: METHYLPREDNISOLONE
     Dosage: 1 MG
     Dates: start: 20110810, end: 20110824
  40. METHYLPREDNISOLON [METHYLPREDNISOLONE] [Concomitant]
     Active Substance: METHYLPREDNISOLONE
     Dosage: 1000 MG
     Dates: start: 20120120, end: 20120121
  41. METHYLPREDNISOLON [METHYLPREDNISOLONE] [Concomitant]
     Active Substance: METHYLPREDNISOLONE
     Dosage: 500 MG
     Dates: start: 20120122, end: 20120122
  42. METHYLPREDNISOLON [METHYLPREDNISOLONE] [Concomitant]
     Active Substance: METHYLPREDNISOLONE
     Dosage: 1000 MG
     Dates: start: 20120123, end: 20120124
  43. IRINOTECAN [Suspect]
     Active Substance: IRINOTECAN
     Indication: GLIOBLASTOMA MULTIFORME
     Dosage: 253.20 MG BI WEEKLY
     Route: 042
  44. DEXAMETHASONE. [Concomitant]
     Active Substance: DEXAMETHASONE
     Dosage: DAILY DOSE 3MG
     Dates: start: 20110218, end: 20110223
  45. METHYLPREDNISOLON [METHYLPREDNISOLONE] [Concomitant]
     Active Substance: METHYLPREDNISOLONE
     Dosage: 20 MG
     Route: 065
     Dates: start: 20110615, end: 20110712
  46. METHYLPREDNISOLON [METHYLPREDNISOLONE] [Concomitant]
     Active Substance: METHYLPREDNISOLONE
     Dosage: 2 MG
     Route: 065
     Dates: start: 20110728, end: 20110810
  47. METHYLPREDNISOLON [METHYLPREDNISOLONE] [Concomitant]
     Active Substance: METHYLPREDNISOLONE
     Dosage: 2 MG
     Dates: start: 20110728, end: 20110809
  48. LEVETIRACETAM. [Concomitant]
     Active Substance: LEVETIRACETAM
     Dosage: 4000 MG
     Route: 065
     Dates: start: 20110413
  49. IBUPROFEN. [Concomitant]
     Active Substance: IBUPROFEN
     Dosage: 400 MG
     Dates: start: 20110110, end: 20110126
  50. ONDANSETRON [Concomitant]
     Active Substance: ONDANSETRON
     Dosage: 4 MG
     Dates: start: 20110112, end: 20110222
  51. THIAMAZOLE [Concomitant]
     Active Substance: METHIMAZOLE
     Dosage: 80 MG
     Dates: start: 20110916

REACTIONS (1)
  - Hyperthyroidism [Recovered/Resolved]

NARRATIVE: CASE EVENT DATE: 20110907
